FAERS Safety Report 26136742 (Version 3)
Quarter: 2025Q4

REPORT INFORMATION
  Report Type: Spontaneous
  Country: JP (occurrence: JP)
  Receive Date: 20251209
  Receipt Date: 20251222
  Transmission Date: 20260118
  Serious: Yes (Other)
  Sender: OTSUKA
  Company Number: JP-MMM-Otsuka-PS0MQKEC

PATIENT
  Age: 91 Year
  Sex: Female

DRUGS (5)
  1. REXULTI [Suspect]
     Active Substance: BREXPIPRAZOLE
     Indication: Dementia
     Dosage: INCREASE TO 2 MG
     Route: 061
  2. REXULTI [Suspect]
     Active Substance: BREXPIPRAZOLE
     Indication: Irritability
     Dosage: 0.5 MG FOR 2 WEEKS
     Route: 061
  3. REXULTI [Suspect]
     Active Substance: BREXPIPRAZOLE
     Dosage: 1 MG FOR 2 WEEKS
     Route: 061
  4. REXULTI [Suspect]
     Active Substance: BREXPIPRAZOLE
     Dosage: 0.5 MG FOR 2 WEEKS
     Route: 061
  5. REXULTI [Suspect]
     Active Substance: BREXPIPRAZOLE
     Dosage: INCREASING THE DOSE TO 1 MG
     Route: 061

REACTIONS (4)
  - Altered state of consciousness [Recovering/Resolving]
  - Altered state of consciousness [Recovering/Resolving]
  - Decreased appetite [Recovering/Resolving]
  - Vomiting [Recovering/Resolving]
